FAERS Safety Report 9450312 (Version 1)
Quarter: 2013Q3

REPORT INFORMATION
  Report Type: Spontaneous
  Country: FR (occurrence: FR)
  Receive Date: 20130809
  Receipt Date: 20130809
  Transmission Date: 20140515
  Serious: Yes (Life-Threatening, Hospitalization)
  Sender: FDA-Public Use
  Company Number: FR-JNJFOC-20130802916

PATIENT
  Age: 66 Year
  Sex: Male
  Weight: 165 kg

DRUGS (11)
  1. XARELTO [Suspect]
     Indication: CEREBROVASCULAR ACCIDENT PROPHYLAXIS
     Route: 048
     Dates: start: 20130712, end: 20130712
  2. XARELTO [Suspect]
     Indication: ATRIAL FIBRILLATION
     Route: 048
     Dates: start: 20130712, end: 20130712
  3. ARIXTRA [Suspect]
     Indication: PRODUCT USED FOR UNKNOWN INDICATION
     Route: 058
     Dates: start: 20130708, end: 20130711
  4. FURADANTINE [Suspect]
     Indication: PRODUCT USED FOR UNKNOWN INDICATION
     Route: 048
     Dates: start: 20130712, end: 20130713
  5. PARACETAMOL [Concomitant]
     Route: 065
  6. NEFOPAM [Concomitant]
     Route: 065
  7. NOVONORM [Concomitant]
     Route: 065
  8. ESIDREX [Concomitant]
     Route: 065
  9. LASILIX [Concomitant]
     Route: 065
  10. SEVIKAR [Concomitant]
     Route: 065
  11. TRAMADOL [Concomitant]
     Route: 065

REACTIONS (2)
  - Haemothorax [Recovering/Resolving]
  - Acute respiratory distress syndrome [Recovered/Resolved]
